FAERS Safety Report 18050132 (Version 1)
Quarter: 2020Q3

REPORT INFORMATION
  Report Type: Report from Study
  Country: US (occurrence: US)
  Receive Date: 20200721
  Receipt Date: 20200721
  Transmission Date: 20201103
  Serious: Yes (Hospitalization, Other)
  Sender: FDA-Public Use
  Company Number: US-ROCHE-2396088

PATIENT
  Age: 65 Year
  Sex: Male
  Weight: 77.6 kg

DRUGS (5)
  1. COBIMETINIB. [Suspect]
     Active Substance: COBIMETINIB
     Indication: CRANIOPHARYNGIOMA
  2. VEMURAFENIB. [Suspect]
     Active Substance: VEMURAFENIB
     Indication: CRANIOPHARYNGIOMA
     Route: 048
     Dates: start: 20191209
  3. COBIMETINIB. [Suspect]
     Active Substance: COBIMETINIB
     Indication: CRANIOPHARYNGIOMA
     Route: 048
     Dates: start: 20191209
  4. XARELTO [Concomitant]
     Active Substance: RIVAROXABAN
  5. VALPROIC ACID. [Suspect]
     Active Substance: VALPROIC ACID
     Indication: CRANIOPHARYNGIOMA
     Route: 065

REACTIONS (7)
  - Hypertension [Recovering/Resolving]
  - Dyspnoea [Recovering/Resolving]
  - Pyrexia [Recovered/Resolved]
  - Pancreatitis [Recovering/Resolving]
  - Abdominal pain [Not Recovered/Not Resolved]
  - Chest pain [Recovered/Resolved]
  - Hypertension [Unknown]

NARRATIVE: CASE EVENT DATE: 20191214
